FAERS Safety Report 5748329-9 (Version None)
Quarter: 2008Q2

REPORT INFORMATION
  Report Type: 
  Country: None (occurrence: None)
  Receive Date: 20080523
  Receipt Date: 20080516
  Transmission Date: 20081010
  Serious: Yes (Hospitalization)
  Sender: FDA-Public Use
  Company Number: GB-AMGEN-US276860

PATIENT
  Sex: Male

DRUGS (3)
  1. ENBREL [Suspect]
     Indication: PSORIASIS
     Route: 058
     Dates: start: 20080101, end: 20080401
  2. LAMISIL [Concomitant]
     Indication: TINEA PEDIS
     Route: 048
     Dates: start: 20080225, end: 20080317
  3. SIMVASTATIN [Concomitant]
     Dosage: UNKNOWN

REACTIONS (8)
  - CHILLS [None]
  - DERMATITIS [None]
  - DERMATITIS EXFOLIATIVE [None]
  - ECZEMA WEEPING [None]
  - HYPERSENSITIVITY [None]
  - MALAISE [None]
  - PYREXIA [None]
  - TACHYCARDIA [None]
